FAERS Safety Report 11882656 (Version 1)
Quarter: 2015Q4

REPORT INFORMATION
  Report Type: Spontaneous
  Country: US (occurrence: None)
  Receive Date: 20151230
  Receipt Date: 20151230
  Transmission Date: 20160305
  Serious: Yes (Hospitalization)
  Sender: FDA-Public Use
  Company Number: None

PATIENT
  Age: 69 Year
  Sex: Female
  Weight: 71.67 kg

DRUGS (2)
  1. MULTIVIT [Concomitant]
     Active Substance: VITAMINS
  2. ALLI [Suspect]
     Active Substance: ORLISTAT
     Indication: WEIGHT CONTROL

REACTIONS (3)
  - Diverticulitis [None]
  - Necrotising colitis [None]
  - Chronic gastritis [None]

NARRATIVE: CASE EVENT DATE: 20151210
